FAERS Safety Report 10393278 (Version 1)
Quarter: 2014Q3

REPORT INFORMATION
  Report Type: Spontaneous
  Country: US (occurrence: US)
  Receive Date: 20140819
  Receipt Date: 20140819
  Transmission Date: 20150326
  Serious: Yes (Hospitalization)
  Sender: FDA-Public Use
  Company Number: US-GILEAD-2014-0112180

PATIENT
  Age: 69 Year
  Sex: Female

DRUGS (11)
  1. LETAIRIS [Suspect]
     Active Substance: AMBRISENTAN
     Indication: PULMONARY ARTERIAL HYPERTENSION
     Dosage: 10 MG, QD
     Route: 065
     Dates: start: 20140218, end: 20140801
  2. KLOR-CON [Concomitant]
     Active Substance: POTASSIUM CHLORIDE
  3. PAROXETINE [Concomitant]
     Active Substance: PAROXETINE\PAROXETINE HYDROCHLORIDE
  4. ALLOPURINOL. [Concomitant]
     Active Substance: ALLOPURINOL
  5. PLAVIX [Concomitant]
     Active Substance: CLOPIDOGREL BISULFATE
  6. LOSARTAN [Concomitant]
     Active Substance: LOSARTAN
  7. HYDRALAZINE [Concomitant]
     Active Substance: HYDRALAZINE HYDROCHLORIDE
  8. NIASPAN [Concomitant]
     Active Substance: NIACIN
  9. NIFEDIPINE. [Concomitant]
     Active Substance: NIFEDIPINE
  10. FUROSEMIDE. [Concomitant]
     Active Substance: FUROSEMIDE
  11. LIPITOR [Concomitant]
     Active Substance: ATORVASTATIN CALCIUM

REACTIONS (2)
  - Fluid retention [Unknown]
  - Dyspnoea [Unknown]
